FAERS Safety Report 20954077 (Version 1)
Quarter: 2022Q2

REPORT INFORMATION
  Report Type: Spontaneous
  Country: FR (occurrence: FR)
  Receive Date: 20220614
  Receipt Date: 20220614
  Transmission Date: 20220721
  Serious: Yes (Life-Threatening, Other)
  Sender: FDA-Public Use
  Company Number: FR-AFSSAPS-PB20221471

PATIENT
  Age: 16 Year
  Sex: Female
  Weight: 54 kg

DRUGS (4)
  1. ALPRAZOLAM [Suspect]
     Active Substance: ALPRAZOLAM
     Indication: Product used for unknown indication
     Dosage: 300 MILLIGRAM
     Route: 065
     Dates: start: 20220113
  2. ACETAMINOPHEN [Suspect]
     Active Substance: ACETAMINOPHEN
     Indication: Product used for unknown indication
     Dosage: 8 GRAM
     Route: 065
     Dates: start: 20220113
  3. SERTRALINE [Suspect]
     Active Substance: SERTRALINE HYDROCHLORIDE
     Indication: Product used for unknown indication
     Dosage: UNK
     Route: 065
     Dates: start: 20220113
  4. CYAMEMAZINE [Suspect]
     Active Substance: CYAMEMAZINE
     Indication: Product used for unknown indication
     Dosage: 375 MILLIGRAM
     Route: 065
     Dates: start: 20220113

REACTIONS (3)
  - Poisoning deliberate [Recovered/Resolved]
  - Coma [Recovered/Resolved]
  - Sinus tachycardia [Recovered/Resolved]

NARRATIVE: CASE EVENT DATE: 20220113
